FAERS Safety Report 22120806 (Version 1)
Quarter: 2023Q1

REPORT INFORMATION
  Report Type: Report from Study
  Country: IN (occurrence: IN)
  Receive Date: 20230321
  Receipt Date: 20230321
  Transmission Date: 20230417
  Serious: Yes (Other)
  Sender: FDA-Public Use
  Company Number: IN-002147023-NVSC2022IN242924

PATIENT
  Age: 77 Year
  Sex: Female
  Weight: 39.2 kg

DRUGS (6)
  1. RIBOCICLIB [Suspect]
     Active Substance: RIBOCICLIB
     Indication: Breast cancer metastatic
     Dosage: 400 MG, QD
     Route: 065
     Dates: start: 20210824
  2. RIBOCICLIB [Suspect]
     Active Substance: RIBOCICLIB
     Dosage: 400 MG, QD (FOR 21 DAYS AND 7 DAYS OFF)
     Route: 065
     Dates: start: 20221122
  3. RIBOCICLIB [Suspect]
     Active Substance: RIBOCICLIB
     Dosage: 400 MG, QD (FOR 21 DAYS AND 7 DAYS OFF)
     Route: 065
     Dates: start: 20221219
  4. RIBOCICLIB [Suspect]
     Active Substance: RIBOCICLIB
     Dosage: 400 MG, QD (FOR 21 DAYS AND 7 DAYS OFF)
     Route: 065
     Dates: start: 20230116
  5. RIBOCICLIB [Suspect]
     Active Substance: RIBOCICLIB
     Dosage: 400 MG, QD (FOR 21 DAYS AND 7 DAYS OFF)
     Route: 065
     Dates: start: 20230213
  6. RIBOCICLIB [Suspect]
     Active Substance: RIBOCICLIB
     Dosage: 400 MG, QD (FOR 21 DAYS AND 7 DAYS OFF)
     Route: 048
     Dates: start: 20230313

REACTIONS (4)
  - Metastases to bone [Unknown]
  - Oedema [Unknown]
  - Skin discolouration [Unknown]
  - Rash [Unknown]

NARRATIVE: CASE EVENT DATE: 20210824
